FAERS Safety Report 17939674 (Version 1)
Quarter: 2020Q2

REPORT INFORMATION
  Report Type: Spontaneous
  Country: PT (occurrence: PT)
  Receive Date: 20200625
  Receipt Date: 20200625
  Transmission Date: 20200714
  Serious: Yes (Death, Other)
  Sender: FDA-Public Use
  Company Number: PT-AUROBINDO-AUR-APL-2020-030110

PATIENT
  Age: 40 Year
  Sex: Female

DRUGS (5)
  1. LETROZOLE. [Suspect]
     Active Substance: LETROZOLE
     Indication: BREAST CANCER
     Dosage: UNK
     Route: 065
  2. TRASTUZUMAB. [Suspect]
     Active Substance: TRASTUZUMAB
     Indication: BREAST CANCER
     Dosage: 25 MILLIGRAM
     Route: 065
  3. TRASTUZUMAB. [Suspect]
     Active Substance: TRASTUZUMAB
     Dosage: UNK
     Route: 065
     Dates: start: 200907
  4. TRASTUZUMAB. [Suspect]
     Active Substance: TRASTUZUMAB
     Dosage: UNK
     Route: 065
     Dates: start: 200901
  5. TRASTUZUMAB. [Suspect]
     Active Substance: TRASTUZUMAB
     Dosage: UNK
     Route: 065
     Dates: start: 200811

REACTIONS (10)
  - Metastases to lung [Unknown]
  - Headache [Unknown]
  - Metastases to meninges [Unknown]
  - Meningitis listeria [Fatal]
  - Ejection fraction decreased [Recovered/Resolved]
  - Musculoskeletal stiffness [Unknown]
  - Metastases to central nervous system [Unknown]
  - Limb discomfort [Unknown]
  - Gait disturbance [Unknown]
  - Metastases to liver [Unknown]

NARRATIVE: CASE EVENT DATE: 200810
